FAERS Safety Report 25504220 (Version 1)
Quarter: 2025Q3

REPORT INFORMATION
  Report Type: Spontaneous
  Country: TR (occurrence: TR)
  Receive Date: 20250702
  Receipt Date: 20250702
  Transmission Date: 20251021
  Serious: Yes (Other)
  Sender: SANOFI AVENTIS
  Company Number: TR-DialogSolutions-SAAVPROD-PI791720-C1

PATIENT
  Age: 45 Year
  Sex: Female

DRUGS (3)
  1. ALEMTUZUMAB [Suspect]
     Active Substance: ALEMTUZUMAB
     Indication: Relapsing-remitting multiple sclerosis
     Route: 041
  2. DIMETHYL FUMARATE [Concomitant]
     Active Substance: DIMETHYL FUMARATE
     Indication: Relapsing-remitting multiple sclerosis
  3. OCRELIZUMAB [Concomitant]
     Active Substance: OCRELIZUMAB
     Indication: Relapsing-remitting multiple sclerosis

REACTIONS (6)
  - Anti-neutrophil cytoplasmic antibody positive vasculitis [Recovering/Resolving]
  - Haematuria [Recovering/Resolving]
  - Glomerulonephritis rapidly progressive [Recovering/Resolving]
  - Kidney fibrosis [Recovering/Resolving]
  - Renal tubular atrophy [Recovering/Resolving]
  - Renal tubular necrosis [Recovering/Resolving]
